FAERS Safety Report 12855860 (Version 1)
Quarter: 2016Q4

REPORT INFORMATION
  Report Type: Spontaneous
  Country: None (occurrence: None)
  Receive Date: 20161007
  Receipt Date: 20161007
  Transmission Date: 20170207
  Serious: Yes (Other)
  Sender: FDA-Public Use
  Company Number: 2016-US-000037

PATIENT
  Sex: Female

DRUGS (1)
  1. KCL [Suspect]
     Active Substance: POTASSIUM CHLORIDE

REACTIONS (4)
  - Constipation [None]
  - Product solubility abnormal [None]
  - Incorrect product storage [None]
  - Rectal haemorrhage [None]
